FAERS Safety Report 5552120-6 (Version None)
Quarter: 2007Q4

REPORT INFORMATION
  Report Type: 
  Country: None (occurrence: None)
  Receive Date: 20071130
  Receipt Date: 20070831
  Transmission Date: 20080405
  Serious: No
  Sender: FDA-Public Use
  Company Number: 2006PV017373

PATIENT
  Age: 71 Year
  Sex: Female
  Weight: 102.5 kg

DRUGS (7)
  1. EXENATIDE (EXENATIDE) PEN, DISPOSABLE [Suspect]
     Indication: TYPE 2 DIABETES MELLITUS
     Dosage: 5 UG, 2/D, SUBCUTANEOUS, 10 UG, 2/D, SUBCUTANEOUS
     Route: 058
     Dates: start: 20060707
  2. EXENATIDE (EXENATIDE) PEN, DISPOSABLE [Suspect]
     Indication: TYPE 2 DIABETES MELLITUS
     Dosage: 5 UG, 2/D, SUBCUTANEOUS, 10 UG, 2/D, SUBCUTANEOUS
     Route: 058
     Dates: start: 20070101
  3. GLUCOPHAGE [Concomitant]
  4. TOPOL [Concomitant]
  5. ACTOS [Concomitant]
  6. AMARYL [Concomitant]
  7. AVANDIA [Concomitant]

REACTIONS (6)
  - BALANCE DISORDER [None]
  - BLOOD GLUCOSE DECREASED [None]
  - BLOOD GLUCOSE INCREASED [None]
  - FATIGUE [None]
  - HYPOTENSION [None]
  - NAUSEA [None]
